FAERS Safety Report 10287501 (Version 2)
Quarter: 2014Q3

REPORT INFORMATION
  Report Type: Spontaneous
  Country: US (occurrence: US)
  Receive Date: 20140709
  Receipt Date: 20140709
  Transmission Date: 20150326
  Serious: Yes (Death, Hospitalization)
  Sender: FDA-Public Use
  Company Number: US-GLAXOSMITHKLINE-B0718221A

PATIENT
  Sex: Male

DRUGS (1)
  1. AVANDIA [Suspect]
     Active Substance: ROSIGLITAZONE MALEATE
     Indication: DIABETES MELLITUS
     Dosage: 4MG TWICE PER DAY
     Route: 048
     Dates: end: 200905

REACTIONS (7)
  - Coronary artery disease [Unknown]
  - Myocardial infarction [Unknown]
  - Dementia Alzheimer^s type [Unknown]
  - Peripheral arterial occlusive disease [Unknown]
  - Carotid artery stenosis [Unknown]
  - Cerebrovascular accident [Fatal]
  - Chronic obstructive pulmonary disease [Unknown]
